FAERS Safety Report 12772992 (Version 1)
Quarter: 2016Q3

REPORT INFORMATION
  Report Type: Spontaneous
  Country: US (occurrence: US)
  Receive Date: 20160922
  Receipt Date: 20160922
  Transmission Date: 20161109
  Serious: No
  Sender: FDA-Public Use
  Company Number: US-INTERCEPT PHARMACEUTICALS, INC.-1057612

PATIENT
  Age: 51 Year
  Sex: Female

DRUGS (2)
  1. OCALIVA [Suspect]
     Active Substance: OBETICHOLIC ACID
     Indication: BILIARY CIRRHOSIS PRIMARY
     Route: 048
     Dates: start: 20160627
  2. CYPROHEPTADINE. [Concomitant]
     Active Substance: CYPROHEPTADINE

REACTIONS (3)
  - Pruritus generalised [Unknown]
  - Wound [Unknown]
  - Skin disorder [Unknown]

NARRATIVE: CASE EVENT DATE: 20160630
